FAERS Safety Report 5723225-1 (Version None)
Quarter: 2008Q2

REPORT INFORMATION
  Report Type: 
  Country: None (occurrence: None)
  Receive Date: 20080430
  Receipt Date: 20080422
  Transmission Date: 20081010
  Serious: Yes (Hospitalization, Other)
  Sender: FDA-Public Use
  Company Number: HQWYE102409AUG04

PATIENT
  Sex: Female
  Weight: 95.34 kg

DRUGS (3)
  1. PREMARIN [Suspect]
  2. PREMPRO [Suspect]
  3. PROVERA [Suspect]

REACTIONS (2)
  - BREAST CANCER METASTATIC [None]
  - CHEST PAIN [None]
